FAERS Safety Report 22315000 (Version 1)
Quarter: 2023Q2

REPORT INFORMATION
  Report Type: Spontaneous
  Country: FI (occurrence: FI)
  Receive Date: 20230512
  Receipt Date: 20230512
  Transmission Date: 20230721
  Serious: Yes (Other)
  Sender: FDA-Public Use
  Company Number: FI-SA-2023SA142628

PATIENT
  Age: 21 Year
  Sex: Male

DRUGS (2)
  1. INSULIN GLARGINE [Suspect]
     Active Substance: INSULIN GLARGINE
     Indication: Type 1 diabetes mellitus
     Dosage: INJECTION
  2. INSULIN ASPART [Suspect]
     Active Substance: INSULIN ASPART
     Indication: Type 1 diabetes mellitus
     Dosage: UNK

REACTIONS (9)
  - Diabetic neuropathy [Recovered/Resolved]
  - Autonomic neuropathy [Recovered/Resolved]
  - Vomiting [Recovered/Resolved]
  - Erectile dysfunction [Recovered/Resolved]
  - Neuralgia [Recovered/Resolved]
  - Diabetic retinopathy [Recovered/Resolved]
  - Diabetic gastroparesis [Recovered/Resolved]
  - Pain in extremity [Recovered/Resolved]
  - Burning sensation [Recovered/Resolved]
